FAERS Safety Report 7804337-5 (Version None)
Quarter: 2011Q4

REPORT INFORMATION
  Report Type: 
  Country: None (occurrence: None)
  Receive Date: 20111010
  Receipt Date: 20110928
  Transmission Date: 20120403
  Serious: Yes (Death)
  Sender: FDA-Public Use
  Company Number: US-BRISTOL-MYERS SQUIBB COMPANY-16113979

PATIENT

DRUGS (2)
  1. CASPOFUNGIN ACETATE [Suspect]
  2. AMPHOTERICIN B [Suspect]

REACTIONS (2)
  - MULTI-ORGAN FAILURE [None]
  - BACTERIAL SEPSIS [None]
